FAERS Safety Report 8181891-8 (Version None)
Quarter: 2012Q1

REPORT INFORMATION
  Report Type: 
  Country: None (occurrence: None)
  Receive Date: 20120302
  Receipt Date: 20120223
  Transmission Date: 20120608
  Serious: Yes (Life-Threatening, Hospitalization)
  Sender: FDA-Public Use
  Company Number: DE-ROCHE-1042897

PATIENT

DRUGS (11)
  1. ENOXAPARIN SODIUM [Concomitant]
  2. DOXORUBICIN HCL [Suspect]
     Indication: HODGKIN'S DISEASE
     Route: 042
     Dates: start: 20110805
  3. PROCARBAZINE HYDROCHLORIDE [Suspect]
     Indication: HODGKIN'S DISEASE
     Dosage: LAST DOSE PRIOR TO SAE 11/AUG/2011
     Dates: start: 20110805
  4. PREDNISONE [Suspect]
     Indication: HODGKIN'S DISEASE
     Dosage: LAST DOSE 11/AUG/2011
     Dates: start: 20110805
  5. ETOPOSIDE [Suspect]
     Indication: HODGKIN'S DISEASE
     Dosage: LAST DOSE 07/AUG/2011
     Dates: start: 20110805
  6. FERROUS SULFATE TAB [Concomitant]
     Dates: start: 20110915, end: 20110915
  7. VINCRISTINE [Suspect]
     Indication: HODGKIN'S DISEASE
     Dosage: LAST DOSE PRIOR TO SAE 12/AUG/2011
     Dates: start: 20110805
  8. MABTHERA [Suspect]
     Indication: HODGKIN'S DISEASE
     Route: 042
     Dates: start: 20110804
  9. BLEOMYCIN SULFATE [Suspect]
     Indication: HODGKIN'S DISEASE
     Route: 042
     Dates: start: 20110805
  10. CYCLOPHOSPHAMIDE [Suspect]
     Indication: HODGKIN'S DISEASE
     Dosage: LAST DOSE 05/AUG/2011
     Dates: start: 20110805
  11. ALLOPURINOL [Concomitant]
     Dates: end: 20090915

REACTIONS (3)
  - SEPSIS [None]
  - RENAL FAILURE [None]
  - DEVICE RELATED INFECTION [None]
